FAERS Safety Report 4876079-X (Version None)
Quarter: 2006Q1

REPORT INFORMATION
  Report Type: 
  Country: None (occurrence: None)
  Receive Date: 20060106
  Receipt Date: 20060106
  Transmission Date: 20060701
  Serious: Yes (Hospitalization)
  Sender: FDA-Public Use
  Company Number: None

PATIENT
  Age: 29 Year
  Sex: Female

DRUGS (1)
  1. TORADOL [Suspect]
     Indication: PAIN
     Dosage: 30 MG 1 X IV BOLUS
     Route: 040

REACTIONS (2)
  - ANAPHYLACTIC REACTION [None]
  - RESPIRATORY DISTRESS [None]
